FAERS Safety Report 9386852 (Version 1)
Quarter: 2013Q3

REPORT INFORMATION
  Report Type: Spontaneous
  Country: US (occurrence: US)
  Receive Date: 20130708
  Receipt Date: 20130708
  Transmission Date: 20140515
  Serious: No
  Sender: FDA-Public Use
  Company Number: US-PFIZER INC-2013198723

PATIENT
  Age: 56 Year
  Sex: Female

DRUGS (1)
  1. NITROSTAT [Suspect]
     Dosage: UNK
     Route: 060

REACTIONS (2)
  - Product taste abnormal [Unknown]
  - Drug ineffective [Unknown]
